FAERS Safety Report 4470446-4 (Version None)
Quarter: 2004Q4

REPORT INFORMATION
  Report Type: 
  Country: None (occurrence: None)
  Receive Date: 20041004
  Receipt Date: 20041004
  Transmission Date: 20050328
  Serious: Yes (Life-Threatening, Congenital Anomaly)
  Sender: FDA-Public Use
  Company Number: None

PATIENT
  Age: 54 Year
  Sex: Male
  Weight: 80.7403 kg

DRUGS (2)
  1. VIOXX [Suspect]
     Indication: BACK INJURY
     Dosage: 2 TO 3 PER DAY INTRACERVI
     Route: 019
     Dates: start: 20000623, end: 20001229
  2. CELEBREX [Suspect]
     Indication: SURGERY
     Dosage: 2 TO 3  PER DAY  INTRACERVI
     Route: 019
     Dates: start: 20010103, end: 20010710

REACTIONS (12)
  - BLOOD TEST ABNORMAL [None]
  - CONDITION AGGRAVATED [None]
  - DIABETES MELLITUS [None]
  - DIARRHOEA [None]
  - DIZZINESS [None]
  - HEADACHE [None]
  - HYPERTENSION [None]
  - IMPAIRED DRIVING ABILITY [None]
  - NAUSEA [None]
  - STOMACH DISCOMFORT [None]
  - URINE ANALYSIS ABNORMAL [None]
  - VISION BLURRED [None]
